FAERS Safety Report 8523635-3 (Version None)
Quarter: 2012Q3

REPORT INFORMATION
  Report Type: 
  Country: None (occurrence: None)
  Receive Date: 20120709
  Receipt Date: 20120623
  Transmission Date: 20120928
  Serious: Yes (Other)
  Sender: FDA-Public Use
  Company Number: 2012AP001948

PATIENT
  Age: 26 Year
  Sex: Female

DRUGS (9)
  1. DOXYCYCLINE HCL [Suspect]
     Indication: ENCEPHALITIS
  2. DOXYCYCLINE HCL [Suspect]
     Indication: RELAPSING FEVER
  3. ACYCLOVIR SODIUM [Suspect]
     Indication: RELAPSING FEVER
  4. ACYCLOVIR SODIUM [Suspect]
     Indication: ENCEPHALITIS
  5. AMPICILLIN SODIUM [Suspect]
     Indication: RELAPSING FEVER
  6. AMPICILLIN SODIUM [Suspect]
     Indication: ENCEPHALITIS
  7. CEFTRIAXONE SODIUM [Suspect]
     Indication: ENCEPHALITIS
  8. CEFTRIAXONE SODIUM [Suspect]
     Indication: RELAPSING FEVER
  9. OFLOXACIN [Concomitant]

REACTIONS (7)
  - ENCEPHALOPATHY [None]
  - JARISCH-HERXHEIMER REACTION [None]
  - RASH [None]
  - AGITATION [None]
  - HYPOTENSION [None]
  - CONDITION AGGRAVATED [None]
  - DRUG HYPERSENSITIVITY [None]
